FAERS Safety Report 24889552 (Version 3)
Quarter: 2025Q3

REPORT INFORMATION
  Report Type: Report from Study
  Country: JP (occurrence: JP)
  Receive Date: 20250127
  Receipt Date: 20250804
  Transmission Date: 20251021
  Serious: Yes (Hospitalization)
  Sender: ALEXION PHARMACEUTICALS
  Company Number: JP-ASTRAZENECA-250006375_032320_P_1

PATIENT
  Age: 46 Year
  Sex: Female
  Weight: 64 kg

DRUGS (15)
  1. ANIFROLUMAB [Suspect]
     Active Substance: ANIFROLUMAB
     Indication: Systemic lupus erythematosus
     Dosage: 300 MILLIGRAM, Q4W
     Dates: start: 20230913, end: 20231108
  2. ANIFROLUMAB [Suspect]
     Active Substance: ANIFROLUMAB
     Dosage: 300 MILLIGRAM, Q4W
     Dates: start: 20240117, end: 20240327
  3. PREDONINE [Concomitant]
     Active Substance: PREDNISOLONE
     Indication: Systemic lupus erythematosus
  4. PLAQUENIL [Concomitant]
     Active Substance: HYDROXYCHLOROQUINE SULFATE
     Indication: Systemic lupus erythematosus
  5. PLAQUENIL [Concomitant]
     Active Substance: HYDROXYCHLOROQUINE SULFATE
  6. PROGRAF [Concomitant]
     Active Substance: TACROLIMUS
     Indication: Systemic lupus erythematosus
  7. PROGRAF [Concomitant]
     Active Substance: TACROLIMUS
  8. ELDECALCITOL [Concomitant]
     Active Substance: ELDECALCITOL
     Indication: Osteoporosis
  9. ELDECALCITOL [Concomitant]
     Active Substance: ELDECALCITOL
     Indication: Prophylaxis
  10. FAMOTIDINE [Concomitant]
     Active Substance: FAMOTIDINE
     Indication: Prophylaxis
  11. FAMOTIDINE [Concomitant]
     Active Substance: FAMOTIDINE
  12. DILTIAZEM HYDROCHLORIDE [Concomitant]
     Active Substance: DILTIAZEM HYDROCHLORIDE
     Indication: Supraventricular tachycardia
  13. DILTIAZEM HYDROCHLORIDE [Concomitant]
     Active Substance: DILTIAZEM HYDROCHLORIDE
  14. VASOLAN [Concomitant]
     Indication: Supraventricular tachycardia
  15. VASOLAN [Concomitant]

REACTIONS (3)
  - Vertigo [Recovered/Resolved]
  - Vomiting [Recovered/Resolved]
  - Malaise [Recovered/Resolved]

NARRATIVE: CASE EVENT DATE: 20231212
